FAERS Safety Report 13550935 (Version 3)
Quarter: 2017Q2

REPORT INFORMATION
  Report Type: Report from Study
  Country: CA (occurrence: CA)
  Receive Date: 20170516
  Receipt Date: 20170607
  Transmission Date: 20170830
  Serious: Yes (Other)
  Sender: FDA-Public Use
  Company Number: CA-PFIZER INC-2017212982

PATIENT
  Age: 57 Year
  Sex: Female

DRUGS (7)
  1. ENTYVIO [Suspect]
     Active Substance: VEDOLIZUMAB
     Indication: COLITIS ULCERATIVE
     Dosage: 300 MG, UNK
     Route: 041
     Dates: start: 20161109
  2. PANTOLOC [Suspect]
     Active Substance: PANTOPRAZOLE SODIUM
     Dosage: UNK
     Route: 048
  3. ENTYVIO [Suspect]
     Active Substance: VEDOLIZUMAB
     Dosage: 300 MG, CYCLIC (Q4WEEKS)
     Route: 041
     Dates: start: 20170310
  4. DEXILANT [Suspect]
     Active Substance: DEXLANSOPRAZOLE
     Indication: GASTROOESOPHAGEAL REFLUX DISEASE
     Dosage: UNK
     Dates: start: 201510
  5. ENTYVIO [Suspect]
     Active Substance: VEDOLIZUMAB
     Dosage: 300 MG, UNK
     Route: 041
     Dates: start: 20161109
  6. ENTYVIO [Suspect]
     Active Substance: VEDOLIZUMAB
     Dosage: 300 MG, UNK
     Route: 041
     Dates: start: 20161109
  7. IMURAN [Concomitant]
     Active Substance: AZATHIOPRINE
     Dosage: UNK
     Dates: start: 20120102

REACTIONS (17)
  - Condition aggravated [Unknown]
  - Hypoaesthesia [Recovered/Resolved]
  - Colitis ulcerative [Unknown]
  - Abdominal pain [Recovered/Resolved]
  - Chest pain [Unknown]
  - Lung infection [Recovered/Resolved]
  - Dyspnoea [Unknown]
  - Therapeutic reaction time decreased [Unknown]
  - Gingivitis [Recovered/Resolved]
  - Muscle spasms [Unknown]
  - Headache [Unknown]
  - Sinusitis [Recovered/Resolved]
  - Viral upper respiratory tract infection [Unknown]
  - Haematochezia [Not Recovered/Not Resolved]
  - Chest discomfort [Unknown]
  - Rhinorrhoea [Unknown]
  - Dry mouth [Recovered/Resolved]

NARRATIVE: CASE EVENT DATE: 201611
